FAERS Safety Report 8915622 (Version 2)
Quarter: 2014Q2

REPORT INFORMATION
  Report Type: Spontaneous
  Country: ES (occurrence: ES)
  Receive Date: 20121119
  Receipt Date: 20131120
  Transmission Date: 20141212
  Serious: Yes (Other)
  Sender: FDA-Public Use
  Company Number: ES-TEVA-369669ISR

PATIENT
  Age: 52 Year
  Sex: Female

DRUGS (2)
  1. CARBOPLATINO TEVA [Suspect]
     Indication: OVARIAN CANCER
     Route: 042
     Dates: start: 20120427, end: 20120427
  2. PACLITAXEL TEVA [Suspect]
     Indication: OVARIAN CANCER
     Route: 042
     Dates: start: 20120427, end: 20120427

REACTIONS (9)
  - Hypotension [Recovered/Resolved]
  - Pruritus [Recovered/Resolved]
  - Anxiety [Recovered/Resolved]
  - Feeling hot [Recovered/Resolved]
  - Paraesthesia [Recovered/Resolved]
  - Hyperhidrosis [Recovered/Resolved]
  - Oxygen saturation decreased [Recovered/Resolved]
  - Abdominal pain [Recovered/Resolved]
  - Nervousness [Recovered/Resolved]
